FAERS Safety Report 4045287 (Version 5)
Quarter: 2012Q4

REPORT INFORMATION
  Report Type: 
  Country: US (occurrence: US)
  Receive Date: 20031208
  Receipt Date: 20121102
  Transmission Date: 20130627
  Serious: Yes (Hospitalization)
  Sender: FDA-Public Use
  Company Number: 186989

PATIENT
  Age: 55 Year
  Sex: Male
  Weight: 86 kg

DRUGS (5)
  1. AVONEX [Suspect]
     Indication: MULTIPLE SCLEROSIS
     Route: 030
     Dates: start: 20010604, end: 20050622
  2. AVONEX [Suspect]
     Indication: MULTIPLE SCLEROSIS
     Route: 030
     Dates: start: 20051205
  3. AVONEX [Suspect]
     Indication: MULTIPLE SCLEROSIS
     Route: 030
     Dates: start: 20060324
  4. IBUPROFEN [Concomitant]
     Indication: CYST
  5. TYLENOL [Concomitant]
     Indication: CYST

REACTIONS (5)
  - Cyst [Recovered/Resolved]
  - Spinal decompression [Recovered/Resolved]
  - Intervertebral disc disorder [Recovered/Resolved]
  - Spinal column stenosis [Not Recovered/Not Resolved]
  - Spinal pain [Not Recovered/Not Resolved]
